FAERS Safety Report 9168664 (Version 1)
Quarter: 2013Q1

REPORT INFORMATION
  Report Type: Spontaneous
  Country: GB (occurrence: None)
  Receive Date: 20130308
  Receipt Date: 20130308
  Transmission Date: 20140127
  Serious: Yes (Other)
  Sender: FDA-Public Use
  Company Number: 2013-03298

PATIENT
  Age: 49 Year
  Sex: Male

DRUGS (2)
  1. METFORMIN HYDROCHLORIDE [Suspect]
     Indication: DIABETES MELLITUS
     Dates: start: 20120905, end: 20130124
  2. GLICLAZIDE [Concomitant]

REACTIONS (4)
  - Blood glucose increased [None]
  - Parosmia [None]
  - Dysgeusia [None]
  - Drug ineffective [None]
